FAERS Safety Report 9743036 (Version 1)
Quarter: 2013Q4

REPORT INFORMATION
  Report Type: Spontaneous
  Country: IT (occurrence: IT)
  Receive Date: 20131210
  Receipt Date: 20131210
  Transmission Date: 20140711
  Serious: Yes (Hospitalization)
  Sender: FDA-Public Use
  Company Number: IT-ELI_LILLY_AND_COMPANY-IT201311008687

PATIENT
  Age: 69 Year
  Sex: Male

DRUGS (2)
  1. ALIMTA [Suspect]
     Indication: ADENOCARCINOMA GASTRIC
     Dosage: 600 MG, UNK
     Route: 042
     Dates: start: 20131111, end: 20131111
  2. CARBOPLATIN [Suspect]
     Indication: LUNG ADENOCARCINOMA STAGE IV
     Dosage: 250 MG, UNK
     Route: 042
     Dates: start: 20131111, end: 20131111

REACTIONS (5)
  - Gastric haemorrhage [Not Recovered/Not Resolved]
  - Pancytopenia [Not Recovered/Not Resolved]
  - Epistaxis [Not Recovered/Not Resolved]
  - Abdominal pain upper [Not Recovered/Not Resolved]
  - Off label use [Recovered/Resolved]
